FAERS Safety Report 6903050-6 (Version None)
Quarter: 2010Q3

REPORT INFORMATION
  Report Type: 
  Country: None (occurrence: None)
  Receive Date: 20100803
  Receipt Date: 20080816
  Transmission Date: 20110219
  Serious: No
  Sender: FDA-Public Use
  Company Number: US-PFIZER INC-2008069033

PATIENT
  Sex: Female
  Weight: 53.6 kg

DRUGS (2)
  1. LYRICA [Suspect]
     Indication: NEURALGIA
     Dates: start: 20080815
  2. ANALGESICS [Concomitant]

REACTIONS (2)
  - DIZZINESS [None]
  - HEADACHE [None]
